FAERS Safety Report 19667624 (Version 1)
Quarter: 2021Q3

REPORT INFORMATION
  Report Type: Spontaneous
  Country: US (occurrence: US)
  Receive Date: 20210806
  Receipt Date: 20210806
  Transmission Date: 20211014
  Serious: Yes (Hospitalization, Other)
  Sender: FDA-Public Use
  Company Number: US-ELI_LILLY_AND_COMPANY-US202107013028

PATIENT
  Age: 69 Year
  Sex: Female

DRUGS (1)
  1. TRULICITY [Suspect]
     Active Substance: DULAGLUTIDE
     Indication: DIABETES MELLITUS
     Dosage: 1.5 MG, UNKNOWN
     Route: 058

REACTIONS (15)
  - Mobility decreased [Not Recovered/Not Resolved]
  - Coronary artery disease [Unknown]
  - COVID-19 [Unknown]
  - Coronary artery thrombosis [Unknown]
  - Peroneal nerve palsy [Unknown]
  - Thrombosis [Unknown]
  - Pulmonary fibrosis [Unknown]
  - Atrial fibrillation [Unknown]
  - Diabetes mellitus inadequate control [Unknown]
  - Coma [Unknown]
  - Alopecia [Unknown]
  - Vocal cord disorder [Not Recovered/Not Resolved]
  - Deafness [Unknown]
  - Decubitus ulcer [Unknown]
  - Glycosylated haemoglobin increased [Unknown]

NARRATIVE: CASE EVENT DATE: 20200517
